FAERS Safety Report 7689146-2 (Version None)
Quarter: 2011Q3

REPORT INFORMATION
  Report Type: 
  Country: None (occurrence: None)
  Receive Date: 20110817
  Receipt Date: 20110811
  Transmission Date: 20111222
  Serious: Yes (Hospitalization)
  Sender: FDA-Public Use
  Company Number: US-ACTELION-A-US2011-48792

PATIENT

DRUGS (5)
  1. TRACLEER [Suspect]
     Dosage: 125 MG, BID
     Route: 048
     Dates: start: 20101124
  2. OXYGEN [Concomitant]
  3. COUMADIN [Concomitant]
  4. REVATIO [Concomitant]
  5. TRACLEER [Suspect]
     Indication: PULMONARY HYPERTENSION
     Dosage: 62.5 MG, BID
     Route: 048
     Dates: start: 20101028, end: 20101123

REACTIONS (4)
  - PULMONARY OEDEMA [None]
  - CHRONIC RESPIRATORY FAILURE [None]
  - PERICARDIAL EFFUSION [None]
  - OSTEOMYELITIS [None]
